FAERS Safety Report 14873291 (Version 2)
Quarter: 2019Q2

REPORT INFORMATION
  Report Type: Spontaneous
  Country: US (occurrence: US)
  Receive Date: 20180510
  Receipt Date: 20190604
  Transmission Date: 20190711
  Serious: No
  Sender: FDA-Public Use
  Company Number: US-PFIZER INC-2018190691

PATIENT
  Age: 72 Year
  Sex: Female

DRUGS (1)
  1. EUCRISA [Suspect]
     Active Substance: CRISABOROLE
     Indication: ECZEMA
     Dosage: 10 MG, 2X/DAY (ONLY USED HALF A SAMPLE TUBE OF EUCRISA)
     Dates: start: 201812

REACTIONS (2)
  - Drug ineffective [Unknown]
  - Application site rash [Unknown]
